FAERS Safety Report 11012841 (Version 2)
Quarter: 2015Q2

REPORT INFORMATION
  Report Type: Spontaneous
  Country: DK (occurrence: None)
  Receive Date: 20150409
  Receipt Date: 20150415
  Transmission Date: 20150821
  Serious: Yes (Other)
  Sender: FDA-Public Use
  Company Number: 2811341

PATIENT
  Age: 51 Year
  Sex: Male

DRUGS (2)
  1. CISPLATIN. [Suspect]
     Active Substance: CISPLATIN
     Indication: BLADDER CANCER
     Dates: start: 20140113, end: 20140325
  2. GEMCITABINE HYDROCHLORIDE. [Suspect]
     Active Substance: GEMCITABINE HYDROCHLORIDE
     Indication: BLADDER CANCER
     Dates: start: 20140113, end: 20140325

REACTIONS (2)
  - Neuroendocrine carcinoma [None]
  - Metastases to liver [None]

NARRATIVE: CASE EVENT DATE: 201406
